FAERS Safety Report 9103878 (Version 1)
Quarter: 2013Q1

REPORT INFORMATION
  Report Type: Spontaneous
  Country: IT (occurrence: IT)
  Receive Date: 20130219
  Receipt Date: 20130219
  Transmission Date: 20140127
  Serious: Yes (Other)
  Sender: FDA-Public Use
  Company Number: IT-BAXTER-2013BAX005143

PATIENT
  Age: 48 Year
  Sex: Female

DRUGS (5)
  1. HOLOXAN [Suspect]
     Indication: BREAST CANCER METASTATIC
     Dosage: 41 G/M2
  2. HOLOXAN [Suspect]
  3. HOLOXAN [Suspect]
  4. HOLOXAN [Suspect]
  5. MESNA [Concomitant]
     Indication: PRODUCT USED FOR UNKNOWN INDICATION

REACTIONS (2)
  - Fanconi syndrome [Recovered/Resolved]
  - Nephrogenic diabetes insipidus [Recovered/Resolved]
